FAERS Safety Report 9775139 (Version 1)
Quarter: 2013Q4

REPORT INFORMATION
  Report Type: Spontaneous
  Country: US (occurrence: None)
  Receive Date: 20131219
  Receipt Date: 20131219
  Transmission Date: 20140711
  Serious: Yes (Disabling)
  Sender: FDA-Public Use
  Company Number: None

PATIENT
  Age: 40 Year
  Sex: Female
  Weight: 56.7 kg

DRUGS (1)
  1. VICODIN\IBUPROFEN [Suspect]
     Indication: PAIN
     Dosage: 1 OR 2 EVERY 6 HOURS TAKEN BY MOUTH
     Route: 048
     Dates: start: 20131118, end: 20131218

REACTIONS (9)
  - Product quality issue [None]
  - Product substitution issue [None]
  - Somnolence [None]
  - Asthenia [None]
  - Nausea [None]
  - Decreased appetite [None]
  - Influenza like illness [None]
  - Malaise [None]
  - Lethargy [None]
